FAERS Safety Report 9815656 (Version 1)
Quarter: 2014Q1

REPORT INFORMATION
  Report Type: Spontaneous
  Country: GB (occurrence: GB)
  Receive Date: 20140114
  Receipt Date: 20140114
  Transmission Date: 20141002
  Serious: Yes (Hospitalization)
  Sender: FDA-Public Use
  Company Number: PHHY2014GB002416

PATIENT
  Age: 81 Year
  Sex: Male
  Weight: 84.5 kg

DRUGS (12)
  1. TAMSULOSIN [Suspect]
     Dates: start: 20130901
  2. SERETIDE [Concomitant]
     Dates: start: 20130901, end: 20131126
  3. EPILIM [Concomitant]
     Dates: start: 20130901, end: 20131124
  4. OMEPRAZOLE [Concomitant]
     Dates: start: 20130901, end: 20130929
  5. SALBUTAMOL [Concomitant]
     Dates: start: 20130901, end: 20131124
  6. FOLIC ACID [Concomitant]
     Dates: start: 20130901, end: 20131124
  7. FUROSEMIDE [Concomitant]
     Dates: start: 20130901, end: 20131124
  8. CITALOPRAM [Concomitant]
     Dates: start: 20130901, end: 20131124
  9. BACLOFEN [Concomitant]
     Dates: start: 20130901, end: 20131124
  10. FERROUS SULFATE [Concomitant]
     Dates: start: 20130901, end: 20131124
  11. DIPROBASE [Concomitant]
     Dates: start: 20130901, end: 20131124
  12. AMLODIPINE [Concomitant]
     Dates: start: 20131003, end: 20131108

REACTIONS (1)
  - Colonic pseudo-obstruction [Recovered/Resolved]
